FAERS Safety Report 22091553 (Version 1)
Quarter: 2023Q1

REPORT INFORMATION
  Report Type: Report from Study
  Country: US (occurrence: US)
  Receive Date: 20230314
  Receipt Date: 20230314
  Transmission Date: 20230417
  Serious: Yes (Death)
  Sender: FDA-Public Use
  Company Number: US-ABBVIE-4339323

PATIENT
  Sex: Male

DRUGS (1)
  1. VENCLEXTA [Suspect]
     Active Substance: VENETOCLAX
     Indication: Acute myeloid leukaemia
     Dosage: FORM STRENGTH: 100 MILLIGRAM?TAKE TABLET BY MOUTH ONCE DAILY WITH FOOD AND A FULL GLASS OF WATER ...
     Route: 048

REACTIONS (2)
  - Septic shock [Fatal]
  - Acute myeloid leukaemia [Fatal]
